FAERS Safety Report 16121922 (Version 1)
Quarter: 2019Q1

REPORT INFORMATION
  Report Type: Spontaneous
  Country: SL (occurrence: SL)
  Receive Date: 20190327
  Receipt Date: 20190327
  Transmission Date: 20190418
  Serious: Yes (Disabling)
  Sender: FDA-Public Use
  Company Number: SL-SUN PHARMACEUTICAL INDUSTRIES LTD-2019RR-202666

PATIENT
  Age: 47 Year
  Sex: Male

DRUGS (4)
  1. ENALAPRIL/HYDROCHLOROTHIAZIDE [Suspect]
     Active Substance: ENALAPRIL MALEATE\HYDROCHLOROTHIAZIDE
     Indication: HYPERTENSION
     Dosage: 20 MG/12/5 MG, IN THE MORNING
     Route: 065
  2. FUROSEMIDE. [Suspect]
     Active Substance: FUROSEMIDE
     Indication: HYPERTENSION
     Dosage: 20 MILLIGRAM, WEEKLY
     Route: 065
  3. CAPTOPRIL. [Suspect]
     Active Substance: CAPTOPRIL
     Indication: HYPERTENSION
     Dosage: 50 MILLIGRAM, WEEKLY
     Route: 065
  4. AMILORIDE HYDROCHLORIDE/HYDROCHLOROTHIAZIDE [Suspect]
     Active Substance: AMILORIDE HYDROCHLORIDE\HYDROCHLOROTHIAZIDE
     Indication: HYPERTENSION
     Dosage: 5 MG/50 MG, AT NIGHT
     Route: 065

REACTIONS (2)
  - Rhabdomyolysis [Recovering/Resolving]
  - Hypokalaemia [Recovering/Resolving]
